FAERS Safety Report 7183287-4 (Version None)
Quarter: 2010Q4

REPORT INFORMATION
  Report Type: 
  Country: None (occurrence: None)
  Receive Date: 20101222
  Receipt Date: 20100630
  Transmission Date: 20110411
  Serious: No
  Sender: FDA-Public Use
  Company Number: A0867932A

PATIENT
  Sex: Male

DRUGS (1)
  1. FLONASE [Suspect]

REACTIONS (3)
  - DYSPHONIA [None]
  - LARYNGITIS [None]
  - NASOPHARYNGITIS [None]
